FAERS Safety Report 7647288-1 (Version None)
Quarter: 2011Q3

REPORT INFORMATION
  Report Type: 
  Country: None (occurrence: None)
  Receive Date: 20110801
  Receipt Date: 20110727
  Transmission Date: 20111222
  Serious: Yes (Hospitalization)
  Sender: FDA-Public Use
  Company Number: FR-PFIZER INC-2011170504

PATIENT
  Age: 39 Year
  Sex: Male

DRUGS (3)
  1. BROMAZEPAM [Suspect]
     Dosage: 20 DF, SINGLE
     Route: 048
  2. NEURONTIN [Suspect]
     Indication: EPILEPSY
     Dosage: 10 DF, SINGLE
  3. LAMICTAL [Suspect]
     Indication: EPILEPSY
     Dosage: 10 DF, SINGLE

REACTIONS (2)
  - PSYCHOMOTOR SKILLS IMPAIRED [None]
  - TOXICITY TO VARIOUS AGENTS [None]
